FAERS Safety Report 25105868 (Version 2)
Quarter: 2025Q2

REPORT INFORMATION
  Report Type: Report from Study
  Country: US (occurrence: US)
  Receive Date: 20250321
  Receipt Date: 20250623
  Transmission Date: 20250716
  Serious: Yes (Other)
  Sender: JOHNSON AND JOHNSON
  Company Number: US-JNJFOC-20250315221

PATIENT
  Age: 72 Year
  Sex: Female

DRUGS (1)
  1. TREMFYA [Suspect]
     Active Substance: GUSELKUMAB
     Indication: Colitis ulcerative
     Route: 041
     Dates: start: 20241223

REACTIONS (3)
  - Pneumonia [Not Recovered/Not Resolved]
  - Pneumothorax [Unknown]
  - Platelet count increased [Not Recovered/Not Resolved]

NARRATIVE: CASE EVENT DATE: 20250101
